FAERS Safety Report 18663425 (Version 1)
Quarter: 2020Q4

REPORT INFORMATION
  Report Type: Spontaneous
  Country: US (occurrence: US)
  Receive Date: 20201224
  Receipt Date: 20201224
  Transmission Date: 20210114
  Serious: No
  Sender: FDA-Public Use
  Company Number: US-009507513-2012USA000198

PATIENT
  Age: 64 Year
  Sex: Male

DRUGS (2)
  1. DECADRON [Suspect]
     Active Substance: DEXAMETHASONE
     Indication: MENINGITIS COCCIDIOIDES
     Dosage: 20 MILLIGRAM, QD FOR 7 DAYS, THEN TAPERED BY 4 MG EVERY 4 DAYS
     Route: 048
  2. FLUCONAZOLE. [Concomitant]
     Active Substance: FLUCONAZOLE
     Indication: MENINGITIS COCCIDIOIDES
     Dosage: 1000 MILLIGRAM, QD

REACTIONS (1)
  - Product use in unapproved indication [Unknown]
